FAERS Safety Report 23403600 (Version 1)
Quarter: 2024Q1

REPORT INFORMATION
  Report Type: Spontaneous
  Country: US (occurrence: None)
  Receive Date: 20240116
  Receipt Date: 20240116
  Transmission Date: 20240410
  Serious: No
  Sender: FDA-Public Use
  Company Number: 2024A009901

PATIENT
  Sex: Male

DRUGS (1)
  1. KOSELUGO [Suspect]
     Active Substance: SELUMETINIB
     Indication: Optic glioma
     Route: 048
     Dates: start: 202202

REACTIONS (5)
  - Illness [Recovering/Resolving]
  - Skin laceration [Recovering/Resolving]
  - Fatigue [Recovering/Resolving]
  - Hair colour changes [Recovering/Resolving]
  - Rash [Recovering/Resolving]

NARRATIVE: CASE EVENT DATE: 20220201
